FAERS Safety Report 10089226 (Version 1)
Quarter: 2014Q2

REPORT INFORMATION
  Report Type: Spontaneous
  Country: US (occurrence: None)
  Receive Date: 20140418
  Receipt Date: 20140418
  Transmission Date: 20141212
  Serious: No
  Sender: FDA-Public Use
  Company Number: None

PATIENT
  Age: 40 Year
  Sex: Male
  Weight: 77.11 kg

DRUGS (1)
  1. ATORVASTATIN [Suspect]
     Indication: MYOCARDIAL INFARCTION
     Dosage: 1  ONCE DAILY TAKEN BY MOUTH
     Route: 048

REACTIONS (3)
  - Mental impairment [None]
  - Disturbance in attention [None]
  - Fatigue [None]
